FAERS Safety Report 17159106 (Version 1)
Quarter: 2019Q4

REPORT INFORMATION
  Report Type: Spontaneous
  Country: US (occurrence: US)
  Receive Date: 20191214
  Receipt Date: 20191214
  Transmission Date: 20200122
  Serious: Yes (Hospitalization)
  Sender: FDA-Public Use
  Company Number: None

PATIENT
  Age: 65 Year
  Sex: Female
  Weight: 81.8 kg

DRUGS (13)
  1. RIVAROXABAN [Suspect]
     Active Substance: RIVAROXABAN
     Indication: ATRIAL FIBRILLATION
     Route: 048
     Dates: start: 20151031
  2. ISOSORBIDE MONONITRATE 30MG DAILY [Concomitant]
  3. POTASSIUM 20MEQ DAILY [Concomitant]
  4. DULOXETINE 60MG DAILY [Concomitant]
  5. NILOTINIB 150MG BID [Concomitant]
  6. AMIODARONE 200MG DAILY [Concomitant]
  7. ATORVASTATIN 40MG DAILY [Concomitant]
  8. INSULIN DETEMIR 40 UNITS BID [Concomitant]
  9. OMEPRAZOLE 20MG DAILY [Concomitant]
  10. LOSARTAN 25MG DAILY [Concomitant]
     Active Substance: LOSARTAN
  11. FUROSEMIDE 80MG DAILY [Concomitant]
  12. METOPROLOL SUCCINATE 50MG DAILY [Concomitant]
  13. ASPIRIN. [Suspect]
     Active Substance: ASPIRIN
     Route: 048
     Dates: start: 20140903

REACTIONS (6)
  - Gastrointestinal haemorrhage [None]
  - Fatigue [None]
  - Gait inability [None]
  - Haemoglobin decreased [None]
  - Asthenia [None]
  - Dyspnoea [None]

NARRATIVE: CASE EVENT DATE: 20160321
